FAERS Safety Report 11666380 (Version 2)
Quarter: 2015Q4

REPORT INFORMATION
  Report Type: Spontaneous
  Country: HR (occurrence: HR)
  Receive Date: 20151027
  Receipt Date: 20151029
  Transmission Date: 20160304
  Serious: Yes (Other)
  Sender: FDA-Public Use
  Company Number: PHHY2015HR137532

PATIENT
  Age: 71 Year
  Sex: Male

DRUGS (1)
  1. EXFORGE HCT [Suspect]
     Active Substance: AMLODIPINE BESYLATE\HYDROCHLOROTHIAZIDE\VALSARTAN
     Indication: ESSENTIAL HYPERTENSION
     Dosage: 1 DF, QD (5 MG AMLO, 160 MG VALS AND 12.5 MG HCTZ)
     Route: 048
     Dates: start: 20150605, end: 20150715

REACTIONS (2)
  - Constipation [Recovered/Resolved]
  - Suprapubic pain [Recovered/Resolved]

NARRATIVE: CASE EVENT DATE: 20150605
